FAERS Safety Report 10233904 (Version 2)
Quarter: 2014Q2

REPORT INFORMATION
  Report Type: Spontaneous
  Country: US (occurrence: US)
  Receive Date: 20140612
  Receipt Date: 20140630
  Transmission Date: 20141212
  Serious: Yes (Other)
  Sender: FDA-Public Use
  Company Number: US-BAYER-2014-086367

PATIENT
  Age: 59 Year
  Sex: Male
  Weight: 118 kg

DRUGS (4)
  1. ALEVE CAPLET [Suspect]
     Indication: ANALGESIC THERAPY
     Dosage: 2 DF, QD
     Route: 048
     Dates: start: 2007, end: 2008
  2. LORAZEPAM [Concomitant]
  3. TRAZODONE [Concomitant]
  4. DIOVAN [Concomitant]

REACTIONS (3)
  - Gastric haemorrhage [Recovered/Resolved]
  - Blood count abnormal [Recovered/Resolved]
  - Incorrect drug administration duration [Unknown]
